FAERS Safety Report 5942686-6 (Version None)
Quarter: 2008Q4

REPORT INFORMATION
  Report Type: 
  Country: None (occurrence: None)
  Receive Date: 20081106
  Receipt Date: 20081029
  Transmission Date: 20090506
  Serious: Yes (Other)
  Sender: FDA-Public Use
  Company Number: US-RANBAXY-2008US-19033

PATIENT

DRUGS (2)
  1. ISOTRETINOIN [Suspect]
     Indication: ACNE
     Dosage: 30 MG, BID
     Route: 048
     Dates: start: 20080813
  2. CLARAVIS [Suspect]
     Indication: ACNE
     Dosage: 30 MG, BID
     Route: 048
     Dates: start: 20080708, end: 20081005

REACTIONS (1)
  - SUICIDAL IDEATION [None]
